FAERS Safety Report 5146239-1 (Version None)
Quarter: 2006Q4

REPORT INFORMATION
  Report Type: 
  Country: None (occurrence: None)
  Receive Date: 20061108
  Receipt Date: 20060901
  Transmission Date: 20070319
  Serious: Yes (Other)
  Sender: FDA-Public Use
  Company Number: PHFR2006GB02733

PATIENT
  Age: 45 Year
  Sex: Male

DRUGS (4)
  1. QUETIAPINE FUMARATE [Suspect]
     Indication: SCHIZOAFFECTIVE DISORDER
     Dosage: 200MG / DAY
     Route: 048
     Dates: start: 20060508
  2. PAROXETINE HCL [Concomitant]
     Indication: SCHIZOAFFECTIVE DISORDER
     Dosage: 20MG / DAY
     Route: 048
     Dates: start: 20060508
  3. VALPROATE SODIUM [Concomitant]
     Indication: SCHIZOAFFECTIVE DISORDER
     Dosage: 1250MG / DAY
     Route: 048
     Dates: start: 20060101
  4. CLOZARIL [Suspect]
     Indication: SCHIZOPHRENIA
     Dosage: 150MG / DAY
     Route: 048
     Dates: start: 20060814, end: 20060901

REACTIONS (11)
  - BLOOD CREATINE PHOSPHOKINASE INCREASED [None]
  - BLOOD PRESSURE FLUCTUATION [None]
  - BLOOD SODIUM INCREASED [None]
  - BODY TEMPERATURE INCREASED [None]
  - C-REACTIVE PROTEIN INCREASED [None]
  - CONSTIPATION [None]
  - DIZZINESS [None]
  - HYPERHIDROSIS [None]
  - RED BLOOD CELL SEDIMENTATION RATE INCREASED [None]
  - TACHYCARDIA [None]
  - TREMOR [None]
